FAERS Safety Report 4348614-1 (Version None)
Quarter: 2004Q2

REPORT INFORMATION
  Report Type: 
  Country: None (occurrence: None)
  Receive Date: 20040427
  Receipt Date: 20040422
  Transmission Date: 20050107
  Serious: Yes (Other)
  Sender: FDA-Public Use
  Company Number: US-BRISTOL-MYERS SQUIBB COMPANY-12568051

PATIENT
  Sex: Male

DRUGS (1)
  1. ERBITUX [Suspect]
     Indication: COLORECTAL CANCER
     Dosage: FIRST INFUSION
     Route: 042
     Dates: start: 20040421, end: 20040421

REACTIONS (2)
  - ANAPHYLACTIC REACTION [None]
  - HAEMORRHAGE INTRACRANIAL [None]
